FAERS Safety Report 9839427 (Version 2)
Quarter: 2014Q1

REPORT INFORMATION
  Report Type: Spontaneous
  Country: IT (occurrence: IT)
  Receive Date: 20140123
  Receipt Date: 20140123
  Transmission Date: 20141002
  Serious: Yes (Other)
  Sender: FDA-Public Use
  Company Number: IT-ROCHE-1311395

PATIENT
  Age: 85 Year
  Sex: Female

DRUGS (4)
  1. HERCEPTIN [Suspect]
     Indication: BREAST CANCER
     Route: 042
     Dates: start: 20131105, end: 20131105
  2. HERCEPTIN [Suspect]
     Route: 042
  3. LIMICAN [Concomitant]
     Route: 042
     Dates: start: 20131105, end: 20131105
  4. ATARAX (ITALY) [Concomitant]
     Route: 048
     Dates: start: 20120101, end: 20131109

REACTIONS (3)
  - Chills [Recovered/Resolved]
  - Hypertensive crisis [Recovered/Resolved]
  - Throat tightness [Recovered/Resolved]
